FAERS Safety Report 25897628 (Version 2)
Quarter: 2025Q4

REPORT INFORMATION
  Report Type: Report from Study
  Country: US (occurrence: US)
  Receive Date: 20251008
  Receipt Date: 20251121
  Transmission Date: 20260118
  Serious: No
  Sender: SANDOZ
  Company Number: US-SANDOZ-SDZ2025US072930

PATIENT
  Sex: Male

DRUGS (2)
  1. HYRIMOZ [Suspect]
     Active Substance: ADALIMUMAB-ADAZ
     Indication: Inflammatory bowel disease
     Dosage: 40 MG, QW
     Route: 065
     Dates: start: 20250813
  2. HYRIMOZ [Suspect]
     Active Substance: ADALIMUMAB-ADAZ
     Indication: Inflammatory bowel disease
     Dosage: 40 MG, QW
     Route: 065
     Dates: start: 20250813

REACTIONS (2)
  - Circumstance or information capable of leading to device use error [Unknown]
  - Device malfunction [Unknown]
